FAERS Safety Report 8444315-9 (Version None)
Quarter: 2012Q2

REPORT INFORMATION
  Report Type: 
  Country: None (occurrence: None)
  Receive Date: 20120618
  Receipt Date: 20120608
  Transmission Date: 20120825
  Serious: Yes (Disabling)
  Sender: FDA-Public Use
  Company Number: GB-ASTRAZENECA-2012SE38501

PATIENT
  Age: 76 Year
  Sex: Female
  Weight: 70 kg

DRUGS (6)
  1. LISINOPRIL [Suspect]
     Route: 048
  2. LISINOPRIL [Suspect]
     Route: 048
  3. ACETAMINOPHEN [Concomitant]
  4. MOTENS [Concomitant]
  5. TEARS NATURALE [Concomitant]
     Dates: start: 20120229, end: 20120412
  6. LACRI-LUBE [Concomitant]

REACTIONS (3)
  - SENSATION OF HEAVINESS [None]
  - DIZZINESS [None]
  - LETHARGY [None]
